FAERS Safety Report 23861903 (Version 1)
Quarter: 2024Q2

REPORT INFORMATION
  Report Type: Spontaneous
  Country: US (occurrence: US)
  Receive Date: 20240516
  Receipt Date: 20240516
  Transmission Date: 20240716
  Serious: Yes (Other)
  Sender: FDA-Public Use
  Company Number: US-TEVA-VS-3187433

PATIENT
  Age: 62 Year
  Sex: Male

DRUGS (2)
  1. UZEDY [Suspect]
     Active Substance: RISPERIDONE
     Indication: Bipolar disorder
     Dosage: 125/0.35 MG/ML??
     Route: 065
  2. UZEDY [Suspect]
     Active Substance: RISPERIDONE
     Indication: Delusional disorder, unspecified type

REACTIONS (3)
  - Hallucination [Unknown]
  - Off label use [Unknown]
  - Condition aggravated [Unknown]
